FAERS Safety Report 6316674-4 (Version None)
Quarter: 2009Q3

REPORT INFORMATION
  Report Type: 
  Country: None (occurrence: None)
  Receive Date: 20090820
  Receipt Date: 20090811
  Transmission Date: 20100115
  Serious: Yes (Hospitalization, Disabling, Other)
  Sender: FDA-Public Use
  Company Number: US-MERCK-0902USA02862

PATIENT
  Age: 37 Year
  Sex: Female

DRUGS (4)
  1. FOSAMAX [Suspect]
     Indication: OSTEOPOROSIS
     Route: 048
     Dates: start: 20020101
  2. CELLCEPT [Concomitant]
     Indication: POLYMYOSITIS
     Route: 065
     Dates: start: 20020101
  3. ATENOLOL [Concomitant]
     Indication: TACHYCARDIA
     Route: 065
     Dates: start: 20010101
  4. CYMBALTA [Concomitant]
     Indication: DEPRESSION
     Route: 065
     Dates: start: 20010101

REACTIONS (11)
  - DIABETES MELLITUS [None]
  - HYPOTHYROIDISM [None]
  - INFECTION [None]
  - KIDNEY INFECTION [None]
  - MUSCULOSKELETAL DISORDER [None]
  - OSTEOMYELITIS [None]
  - OSTEONECROSIS [None]
  - PANCREATITIS [None]
  - POLYMYOSITIS [None]
  - RESORPTION BONE INCREASED [None]
  - SWELLING [None]
